FAERS Safety Report 10779251 (Version 1)
Quarter: 2015Q1

REPORT INFORMATION
  Report Type: Spontaneous
  Country: US (occurrence: None)
  Receive Date: 20150206
  Receipt Date: 20150206
  Transmission Date: 20150721
  Serious: Yes (Hospitalization)
  Sender: FDA-Public Use
  Company Number: None

PATIENT
  Age: 54 Year
  Sex: Female
  Weight: 130 kg

DRUGS (11)
  1. CETIRAZINE [Concomitant]
  2. SYMBICORT [Concomitant]
     Active Substance: BUDESONIDE\FORMOTEROL FUMARATE DIHYDRATE
  3. IBUPROFEN. [Concomitant]
     Active Substance: IBUPROFEN
  4. TRAMADOL [Concomitant]
     Active Substance: TRAMADOL
  5. INSULIN GLARGINE [Concomitant]
     Active Substance: INSULIN GLARGINE
  6. LEVOTHYROXINE [Concomitant]
     Active Substance: LEVOTHYROXINE
  7. RANITIDINE [Concomitant]
     Active Substance: RANITIDINE\RANITIDINE HYDROCHLORIDE
  8. LOVAZA [Concomitant]
     Active Substance: OMEGA-3-ACID ETHYL ESTERS
  9. INVOKANA [Suspect]
     Active Substance: CANAGLIFLOZIN
     Dosage: 1 TAB, QD ORAL
     Route: 048
  10. ASA [Concomitant]
     Active Substance: ASPIRIN
  11. ALBUTEROL MDI [Concomitant]

REACTIONS (6)
  - Presyncope [None]
  - Anxiety [None]
  - Heart rate increased [None]
  - Chest pain [None]
  - Psychomotor hyperactivity [None]
  - Aphasia [None]

NARRATIVE: CASE EVENT DATE: 20150202
